FAERS Safety Report 9296526 (Version 1)
Quarter: 2013Q2

REPORT INFORMATION
  Report Type: Spontaneous
  Country: CO (occurrence: CO)
  Receive Date: 20130517
  Receipt Date: 20130517
  Transmission Date: 20140414
  Serious: Yes (Death, Hospitalization, Other)
  Sender: FDA-Public Use
  Company Number: CO-BRISTOL-MYERS SQUIBB COMPANY-18880336

PATIENT
  Age: 62 Year
  Sex: Female

DRUGS (1)
  1. IXEMPRA [Suspect]
     Indication: BREAST CANCER
     Dates: start: 20130405, end: 20130405

REACTIONS (3)
  - Cardio-respiratory arrest [Fatal]
  - Hypoxia [Unknown]
  - Dyspnoea [Unknown]
